FAERS Safety Report 7700172-7 (Version None)
Quarter: 2011Q3

REPORT INFORMATION
  Report Type: 
  Country: None (occurrence: None)
  Receive Date: 20110822
  Receipt Date: 20110817
  Transmission Date: 20111222
  Serious: Yes (Other)
  Sender: FDA-Public Use
  Company Number: US-PFIZER INC-2011132581

PATIENT
  Sex: Female

DRUGS (8)
  1. TRAZODONE [Concomitant]
     Indication: SLEEP DISORDER
     Dosage: UNK
     Dates: start: 20050101
  2. ACETYLSALICYLIC ACID [Concomitant]
     Indication: MYOCARDIAL INFARCTION
     Dosage: UNK
     Dates: start: 20000101
  3. KLONOPIN [Concomitant]
     Indication: DEPRESSION
     Dosage: UNK
     Dates: start: 20080101
  4. HYDROCHLOROTHIAZIDE [Concomitant]
     Indication: HYPERTENSION
     Dosage: UNK
     Dates: start: 20040101
  5. BENZONATATE [Concomitant]
     Indication: COUGH
     Dosage: UNK
     Dates: start: 20050101
  6. CHANTIX [Suspect]
     Indication: SMOKING CESSATION THERAPY
     Dosage: 0.5MG AND 1MG,UNK
     Dates: start: 20090320, end: 20090620
  7. VICODIN [Concomitant]
     Indication: PAIN
     Dosage: UNK
     Dates: start: 20040101
  8. PAXIL [Concomitant]
     Indication: DEPRESSION
     Dosage: UNK
     Dates: start: 20050101

REACTIONS (5)
  - SUICIDAL BEHAVIOUR [None]
  - AGGRESSION [None]
  - DEPRESSION [None]
  - ANXIETY [None]
  - MENTAL DISORDER [None]
